FAERS Safety Report 6003598-5 (Version None)
Quarter: 2008Q4

REPORT INFORMATION
  Report Type: 
  Country: None (occurrence: None)
  Receive Date: 20081216
  Receipt Date: 20081203
  Transmission Date: 20090506
  Serious: Yes (Death, Life-Threatening, Hospitalization, Disabling)
  Sender: FDA-Public Use
  Company Number: MX-AVENTIS-200812611EU

PATIENT
  Age: 50 Year
  Sex: Male
  Weight: 90.5 kg

DRUGS (11)
  1. ENOXAPARIN SODIUM [Suspect]
     Route: 058
     Dates: start: 20080521, end: 20080528
  2. ALL OTHER NON-THERAPEUTIC PRODUCTS [Concomitant]
  3. IMIPENEM [Concomitant]
     Route: 042
     Dates: start: 20080527, end: 20080528
  4. IMIPENEM [Concomitant]
     Route: 042
     Dates: start: 20080528
  5. NIFEDIPINE [Concomitant]
     Route: 048
     Dates: start: 20080527
  6. INSULIN [Concomitant]
     Route: 042
     Dates: start: 20080527
  7. INSULIN [Concomitant]
     Route: 058
     Dates: start: 20080520, end: 20080527
  8. CEFOTAXIME [Concomitant]
     Route: 042
     Dates: start: 20080520, end: 20080527
  9. CAPTOPRIL [Concomitant]
     Route: 048
     Dates: start: 20080520, end: 20080528
  10. OMEPRAZOLE [Concomitant]
     Route: 042
     Dates: start: 20080520
  11. AMIKACINA [Concomitant]
     Route: 042
     Dates: start: 20080526, end: 20080527

REACTIONS (6)
  - ANURIA [None]
  - BALANOPOSTHITIS [None]
  - BLOOD CREATININE INCREASED [None]
  - SEPSIS [None]
  - THROMBOCYTOPENIA [None]
  - URETHRAL DISORDER [None]
